FAERS Safety Report 4748207-8 (Version None)
Quarter: 2005Q3

REPORT INFORMATION
  Report Type: 
  Country: None (occurrence: None)
  Receive Date: 20050818
  Receipt Date: 20050812
  Transmission Date: 20060218
  Serious: Yes (Hospitalization)
  Sender: FDA-Public Use
  Company Number: GB-BRISTOL-MYERS SQUIBB COMPANY-13077409

PATIENT
  Age: 81 Year
  Sex: Female

DRUGS (4)
  1. HYDROXYUREA [Suspect]
     Indication: MYELOPROLIFERATIVE DISORDER
     Route: 048
     Dates: start: 20010101
  2. WARFARIN [Concomitant]
     Indication: PULMONARY EMBOLISM
     Route: 048
     Dates: start: 20030901, end: 20050714
  3. BETAHISTINE DIHYDROCHLORIDE [Concomitant]
     Indication: DIZZINESS
     Route: 048
     Dates: start: 20000101, end: 20050401
  4. BETAHISTINE DIHYDROCHLORIDE [Concomitant]
     Indication: ATRIAL FIBRILLATION
     Route: 048
     Dates: start: 20000101, end: 20050401

REACTIONS (2)
  - INTERNATIONAL NORMALISED RATIO INCREASED [None]
  - JOINT SWELLING [None]
